FAERS Safety Report 12694223 (Version 1)
Quarter: 2016Q3

REPORT INFORMATION
  Report Type: Spontaneous
  Country: US (occurrence: US)
  Receive Date: 20160829
  Receipt Date: 20160829
  Transmission Date: 20161109
  Serious: Yes (Other)
  Sender: FDA-Public Use
  Company Number: US-SA-2016SA154247

PATIENT
  Age: 77 Year
  Sex: Male

DRUGS (4)
  1. MULTAQ [Suspect]
     Active Substance: DRONEDARONE
     Indication: ATRIAL FIBRILLATION
     Route: 048
     Dates: start: 20160817
  2. HYDRALAZINE [Suspect]
     Active Substance: HYDRALAZINE HYDROCHLORIDE
     Route: 065
  3. DIOVAN [Concomitant]
     Active Substance: VALSARTAN
  4. DILTIAZEM. [Concomitant]
     Active Substance: DILTIAZEM
     Dates: end: 20160816

REACTIONS (2)
  - Atrial fibrillation [Recovered/Resolved]
  - Presyncope [Unknown]

NARRATIVE: CASE EVENT DATE: 20160818
